FAERS Safety Report 6825173-2 (Version None)
Quarter: 2010Q3

REPORT INFORMATION
  Report Type: 
  Country: None (occurrence: None)
  Receive Date: 20100708
  Receipt Date: 20070327
  Transmission Date: 20110219
  Serious: No
  Sender: FDA-Public Use
  Company Number: US-PFIZER INC-2007002166

PATIENT
  Sex: Female

DRUGS (4)
  1. CHANTIX [Suspect]
     Dates: start: 20070101
  2. SYNTHROID [Concomitant]
  3. PAXIL [Concomitant]
  4. LOTREL [Concomitant]

REACTIONS (1)
  - PANIC ATTACK [None]
